FAERS Safety Report 9557120 (Version 1)
Quarter: 2013Q3

REPORT INFORMATION
  Report Type: Spontaneous
  Country: US (occurrence: None)
  Receive Date: 20130726
  Receipt Date: 20130726
  Transmission Date: 20140515
  Serious: Yes (Hospitalization)
  Sender: FDA-Public Use
  Company Number: UTC-024905

PATIENT
  Age: 39 Year
  Sex: Female
  Weight: 69.55 kg

DRUGS (2)
  1. REMODULIN [Suspect]
     Indication: PULMONARY ARTERIAL HYPERTENSION
     Dosage: 57.6 UG/KG (0.04 UG/KG, 1 IN 1 MIN), INTRAVENOUS DRIP
     Route: 041
     Dates: start: 20120721, end: 20121025
  2. ADCCIRCA (TADALAFIL) (UNKNOWN) [Concomitant]

REACTIONS (2)
  - Vomiting [None]
  - Accidental overdose [None]
